FAERS Safety Report 4631598-6 (Version None)
Quarter: 2005Q2

REPORT INFORMATION
  Report Type: 
  Country: None (occurrence: None)
  Receive Date: 20050407
  Receipt Date: 20050331
  Transmission Date: 20051028
  Serious: Yes (Death, Hospitalization)
  Sender: FDA-Public Use
  Company Number: 200510312BVD

PATIENT
  Age: 61 Year
  Sex: Male

DRUGS (5)
  1. CIPROFLOXACIN [Suspect]
     Indication: LEUKOPENIA
     Dosage: 500 MG, TOTAL DAILY, UNK
     Route: 065
     Dates: start: 20041029, end: 20041103
  2. CIPROHEXAL (CIPROFLOXACIN) [Suspect]
     Indication: URINARY TRACT INFECTION
     Dosage: NI
     Dates: start: 20040501
  3. CIPROFLOXACIN STADA (CIPROFLOXACIN) [Suspect]
     Dosage: NI
     Dates: start: 20040601
  4. FIRIN [Concomitant]
  5. ASPIRIN [Concomitant]

REACTIONS (10)
  - APLASTIC ANAEMIA [None]
  - AUTOIMMUNE DISORDER [None]
  - CATHETER SEPSIS [None]
  - HAEMATOMA [None]
  - HAEMORRHAGE [None]
  - MULTI-ORGAN FAILURE [None]
  - PANCYTOPENIA [None]
  - PNEUMONIA FUNGAL [None]
  - PROSTATITIS [None]
  - SHOCK [None]
